FAERS Safety Report 25640765 (Version 1)
Quarter: 2025Q3

REPORT INFORMATION
  Report Type: Spontaneous
  Country: CN (occurrence: CN)
  Receive Date: 20250804
  Receipt Date: 20250804
  Transmission Date: 20251020
  Serious: Yes (Death, Hospitalization)
  Sender: MERCK SHARP & DOHME LLC
  Company Number: CN-009507513-2304171

PATIENT
  Sex: Male
  Weight: 73 kg

DRUGS (38)
  1. PEMBROLIZUMAB [Suspect]
     Active Substance: PEMBROLIZUMAB
     Indication: Non-small cell lung cancer metastatic
     Route: 042
     Dates: start: 20240712, end: 20240712
  2. PEMBROLIZUMAB [Suspect]
     Active Substance: PEMBROLIZUMAB
     Indication: Non-small cell lung cancer metastatic
     Route: 042
     Dates: start: 20240802, end: 20240802
  3. PEMBROLIZUMAB [Suspect]
     Active Substance: PEMBROLIZUMAB
     Indication: Non-small cell lung cancer metastatic
     Route: 042
     Dates: start: 20240822, end: 20240822
  4. PEMBROLIZUMAB [Suspect]
     Active Substance: PEMBROLIZUMAB
     Indication: Non-small cell lung cancer metastatic
     Route: 042
     Dates: start: 20241017, end: 20241017
  5. PEMBROLIZUMAB [Suspect]
     Active Substance: PEMBROLIZUMAB
     Indication: Non-small cell lung cancer metastatic
     Route: 042
     Dates: start: 20241206, end: 20241206
  6. CARBOPLATIN [Suspect]
     Active Substance: CARBOPLATIN
     Indication: Non-small cell lung cancer metastatic
     Route: 042
     Dates: start: 20240712, end: 20240712
  7. CARBOPLATIN [Suspect]
     Active Substance: CARBOPLATIN
     Indication: Non-small cell lung cancer metastatic
     Route: 042
     Dates: start: 20240802, end: 20240802
  8. CARBOPLATIN [Suspect]
     Active Substance: CARBOPLATIN
     Indication: Non-small cell lung cancer metastatic
     Route: 042
     Dates: start: 20240822, end: 20240822
  9. CARBOPLATIN [Suspect]
     Active Substance: CARBOPLATIN
     Indication: Non-small cell lung cancer metastatic
     Route: 042
     Dates: start: 20240926, end: 20240926
  10. PEMETREXED [Suspect]
     Active Substance: PEMETREXED
     Indication: Non-small cell lung cancer metastatic
     Dates: start: 20240712, end: 20240712
  11. PEMETREXED [Suspect]
     Active Substance: PEMETREXED
     Indication: Non-small cell lung cancer metastatic
     Dates: start: 20240802, end: 20240802
  12. PEMETREXED [Suspect]
     Active Substance: PEMETREXED
     Indication: Non-small cell lung cancer metastatic
     Dates: start: 20240822, end: 20240822
  13. PEMETREXED [Suspect]
     Active Substance: PEMETREXED
     Indication: Non-small cell lung cancer metastatic
     Dates: start: 20240926, end: 20240926
  14. PEMETREXED [Suspect]
     Active Substance: PEMETREXED
     Indication: Non-small cell lung cancer metastatic
     Dates: start: 20241017, end: 20241017
  15. PEMETREXED [Suspect]
     Active Substance: PEMETREXED
     Indication: Non-small cell lung cancer metastatic
     Dates: start: 20241108, end: 20241108
  16. PEMETREXED [Suspect]
     Active Substance: PEMETREXED
     Indication: Non-small cell lung cancer metastatic
     Dates: start: 20241206, end: 20241206
  17. RIVAROXABAN [Concomitant]
     Active Substance: RIVAROXABAN
     Dates: start: 202405
  18. ROSUVASTATIN [Concomitant]
     Active Substance: ROSUVASTATIN
     Dates: start: 202405
  19. AMBROXOL [Concomitant]
     Active Substance: AMBROXOL
     Dates: start: 202406
  20. AMIODARONE [Concomitant]
     Active Substance: AMIODARONE
     Dates: start: 202406
  21. DOXOFYLLINE [Concomitant]
     Active Substance: DOXOFYLLINE
     Dates: start: 202406
  22. MONTELUKAST SODIUM [Concomitant]
     Active Substance: MONTELUKAST SODIUM
     Dates: start: 202406
  23. PROCATEROL HYDROCHLORIDE [Concomitant]
     Active Substance: PROCATEROL HYDROCHLORIDE
     Dates: start: 202406
  24. FLUTICASONE PROPIONATE AND SALMETEROL [Concomitant]
     Active Substance: FLUTICASONE PROPIONATE\SALMETEROL XINAFOATE
     Dates: start: 202406
  25. IRBESARTAN [Concomitant]
     Active Substance: IRBESARTAN
     Dates: start: 202407
  26. VITAMINS [Concomitant]
     Active Substance: VITAMINS
     Dates: start: 20240703
  27. FOLIC ACID [Concomitant]
     Active Substance: FOLIC ACID
     Dates: start: 20240703
  28. CALCIUM CARBONATE\CHOLECALCIFEROL [Concomitant]
     Active Substance: CALCIUM CARBONATE\CHOLECALCIFEROL
     Dates: start: 20240829
  29. LORATADINE [Concomitant]
     Active Substance: LORATADINE
     Dates: start: 20240909
  30. HALOMETASONE;TRICLOSAN [Concomitant]
     Dates: start: 20241010
  31. CAFFEIC ACID [Concomitant]
     Active Substance: CAFFEIC ACID
     Dates: start: 20241108
  32. DEXAMETHASONE SODIUM PHOSPHATE [Concomitant]
     Active Substance: DEXAMETHASONE SODIUM PHOSPHATE
     Dates: start: 20241108, end: 20241108
  33. DI YU SHENG BAI [Concomitant]
     Dates: start: 20241108
  34. ESOMEPRAZOLE SODIUM [Concomitant]
     Active Substance: ESOMEPRAZOLE SODIUM
     Dates: start: 20241108, end: 20241108
  35. METOCLOPRAMIDE [Concomitant]
     Active Substance: METOCLOPRAMIDE
     Dates: start: 20241108, end: 20241108
  36. TROPISETRON HYDROCHLORIDE [Concomitant]
     Active Substance: TROPISETRON HYDROCHLORIDE
     Dates: start: 20241108, end: 20241108
  37. BISOPROLOL FUMARATE [Concomitant]
     Active Substance: BISOPROLOL FUMARATE
     Dates: start: 20241108
  38. SODIUM THIOSULFATE [Concomitant]
     Active Substance: SODIUM THIOSULFATE
     Dates: start: 20241108, end: 20241108

REACTIONS (2)
  - Sudden death [Fatal]
  - Drug eruption [Not Recovered/Not Resolved]

NARRATIVE: CASE EVENT DATE: 20241207
